FAERS Safety Report 10989474 (Version 2)
Quarter: 2015Q2

REPORT INFORMATION
  Report Type: Spontaneous
  Country: US (occurrence: US)
  Receive Date: 20150406
  Receipt Date: 20150521
  Transmission Date: 20150821
  Serious: Yes (Hospitalization, Other)
  Sender: FDA-Public Use
  Company Number: US-AMGEN-USASP2015031200

PATIENT
  Age: 69 Year
  Sex: Male

DRUGS (2)
  1. ACTEMRA [Concomitant]
     Active Substance: TOCILIZUMAB
     Dosage: UNK
  2. ENBREL [Suspect]
     Active Substance: ETANERCEPT
     Indication: RHEUMATOID ARTHRITIS
     Dosage: 50 MG, QWK
     Route: 065
     Dates: start: 2006

REACTIONS (5)
  - Joint effusion [Not Recovered/Not Resolved]
  - Procedural complication [Not Recovered/Not Resolved]
  - Arterial rupture [Not Recovered/Not Resolved]
  - Post procedural complication [Not Recovered/Not Resolved]
  - Synovectomy [Recovered/Resolved]

NARRATIVE: CASE EVENT DATE: 2011
